FAERS Safety Report 8044399-6 (Version None)
Quarter: 2012Q1

REPORT INFORMATION
  Report Type: 
  Country: None (occurrence: None)
  Receive Date: 20120113
  Receipt Date: 20120103
  Transmission Date: 20120608
  Serious: Yes (Death)
  Sender: FDA-Public Use
  Company Number: US-SHIONOGI, INC-2012000023

PATIENT
  Age: 55 Year
  Sex: Female

DRUGS (13)
  1. MORPHINE [Suspect]
     Dosage: UNK
  2. ALPRAZOLAM [Suspect]
     Dosage: UNK
  3. EZETIMIBE/SIMVASTATIN [Suspect]
     Dosage: UNK
  4. GABAPENTIN [Suspect]
     Dosage: UNK
  5. OXYCODONE HCL [Suspect]
     Dosage: UNK
  6. HYDROCODONE BITARTRATE [Suspect]
     Dosage: UNK
  7. LISINOPRIL [Suspect]
     Dosage: UNK
  8. MONTELUKAST SODIUM [Suspect]
     Dosage: UNK
  9. CIMETIDINE [Suspect]
     Dosage: UNK
  10. PRAVASTATIN [Suspect]
     Dosage: UNK
  11. NAPROXEN [Suspect]
     Dosage: UNK
  12. COCAINE [Suspect]
     Dosage: UNK
  13. CYCLOBENZAPRINE [Suspect]
     Dosage: UNK

REACTIONS (1)
  - DEATH [None]
